FAERS Safety Report 10662321 (Version 1)
Quarter: 2014Q4

REPORT INFORMATION
  Report Type: Spontaneous
  Country: US (occurrence: US)
  Receive Date: 20141218
  Receipt Date: 20141218
  Transmission Date: 20150529
  Serious: Yes (Congenital Anomaly)
  Sender: FDA-Public Use
  Company Number: US-ABBVIE-14P-163-1321419-00

PATIENT

DRUGS (1)
  1. DEPAKOTE [Suspect]
     Active Substance: DIVALPROEX SODIUM
     Indication: MATERNAL EXPOSURE TIMING UNSPECIFIED
     Route: 064

REACTIONS (8)
  - Social problem [Unknown]
  - Autism [Unknown]
  - Learning disability [Unknown]
  - Developmental delay [Unknown]
  - Illiteracy [Unknown]
  - Mental disability [Unknown]
  - Abnormal behaviour [Unknown]
  - Mental impairment [Unknown]
